FAERS Safety Report 4401463-8 (Version None)
Quarter: 2004Q3

REPORT INFORMATION
  Report Type: 
  Country: None (occurrence: None)
  Receive Date: 20040907
  Receipt Date: 20040514
  Transmission Date: 20050211
  Serious: No
  Sender: FDA-Public Use
  Company Number: US-BRISTOL-MYERS SQUIBB COMPANY-12587903

PATIENT
  Sex: Male

DRUGS (4)
  1. COUMADIN [Suspect]
     Route: 048
  2. LEXAPRO [Concomitant]
     Dosage: DOSE WAS REDUCED
  3. PRAVACHOL [Concomitant]
  4. WELLBUTRIN [Concomitant]

REACTIONS (1)
  - INTERNATIONAL NORMALISED RATIO DECREASED [None]
